FAERS Safety Report 8821905 (Version 3)
Quarter: 2012Q4

REPORT INFORMATION
  Report Type: 
  Country: US (occurrence: US)
  Receive Date: 20121003
  Receipt Date: 20121129
  Transmission Date: 20130627
  Serious: Yes (Hospitalization, Disabling, Other)
  Sender: FDA-Public Use
  Company Number: US-009507513-1203USA03474

PATIENT

DRUGS (7)
  1. FOSAMAX [Suspect]
     Indication: OSTEOPOROSIS
     Dosage: 10 mg, qd
     Route: 048
     Dates: start: 199809, end: 200110
  2. FOSAMAX [Suspect]
     Dosage: 70 mg, UNK
     Route: 048
     Dates: start: 200110, end: 201003
  3. VITAMINS (UNSPECIFIED) [Concomitant]
     Dosage: UNK UNK, qd
     Route: 048
  4. CHOLECALCIFEROL [Concomitant]
     Dosage: 5000 IU, qd
     Route: 048
  5. CALCIUM (UNSPECIFIED) [Concomitant]
     Dosage: 500 mg, qd
     Route: 048
  6. CITRACAL [Concomitant]
     Dosage: UNK, qd
     Route: 048
  7. IBUPROFEN [Concomitant]
     Indication: RHEUMATOID ARTHRITIS
     Dosage: UNK, prn
     Route: 048
     Dates: start: 1980

REACTIONS (28)
  - Femur fracture [Unknown]
  - Open reduction of fracture [Unknown]
  - Osteoporosis [Unknown]
  - Fall [Unknown]
  - Stress fracture [Unknown]
  - Femur fracture [Unknown]
  - Foot fracture [Unknown]
  - Tooth extraction [Unknown]
  - Tooth disorder [Unknown]
  - Dental implantation [Unknown]
  - Inflammatory bowel disease [Unknown]
  - Breast swelling [Unknown]
  - Hot flush [Unknown]
  - Fluid retention [Unknown]
  - Pain [Unknown]
  - Upper respiratory tract infection [Unknown]
  - Breast tenderness [Unknown]
  - Breast disorder [Unknown]
  - Tonsillectomy [Unknown]
  - Appendicectomy [Unknown]
  - Breast lump removal [Unknown]
  - Osteoarthritis [Unknown]
  - Depression [Unknown]
  - Anxiety [Unknown]
  - Mammogram abnormal [Unknown]
  - Mass [Unknown]
  - Dizziness [Unknown]
  - Gastrooesophageal reflux disease [Unknown]
